FAERS Safety Report 4711394-1 (Version None)
Quarter: 2005Q3

REPORT INFORMATION
  Report Type: 
  Country: None (occurrence: None)
  Receive Date: 20050708
  Receipt Date: 20050629
  Transmission Date: 20060218
  Serious: Yes (Hospitalization)
  Sender: FDA-Public Use
  Company Number: OMPQ-PR-0506S-0893

PATIENT
  Age: 48 Year
  Sex: Male

DRUGS (3)
  1. OMNIPAQUE 300 [Suspect]
     Indication: BACK PAIN
     Dosage: SINGLE DOSE, EPIDURAL
     Route: 008
     Dates: start: 20050613, end: 20050613
  2. OMNIPAQUE 300 [Suspect]
     Indication: BACK PAIN
     Dosage: SINGLE DOSE, EPIDURAL
     Route: 008
     Dates: start: 20050613, end: 20050613
  3. TRIAMCINOLONE ACETONIDE (KENALOG) [Concomitant]

REACTIONS (5)
  - BACILLUS INFECTION [None]
  - BLOOD CULTURE POSITIVE [None]
  - CHILLS [None]
  - INJECTION SITE PAIN [None]
  - PYREXIA [None]
